FAERS Safety Report 9722427 (Version 2)
Quarter: 2014Q1

REPORT INFORMATION
  Report Type: Spontaneous
  Country: US (occurrence: US)
  Receive Date: 20131202
  Receipt Date: 20140131
  Transmission Date: 20141002
  Serious: Yes (Hospitalization, Other)
  Sender: FDA-Public Use
  Company Number: US-009507513-1311USA010922

PATIENT
  Age: 74 Year
  Sex: Female

DRUGS (3)
  1. BOCEPREVIR [Suspect]
     Indication: HEPATITIS C
     Dosage: 800 MG, TID
     Route: 048
  2. RIBAVIRIN (WARRICK) [Suspect]
     Indication: HEPATITIS C
     Dosage: 800 MG, QD
     Route: 048
  3. PEGASYS [Suspect]
     Indication: HEPATITIS C
     Dosage: 180 MICROGRAM, QW
     Route: 058

REACTIONS (2)
  - Metabolic encephalopathy [Recovered/Resolved]
  - Electrolyte imbalance [Recovered/Resolved]
